FAERS Safety Report 7735168-2 (Version None)
Quarter: 2011Q3

REPORT INFORMATION
  Report Type: 
  Country: None (occurrence: None)
  Receive Date: 20110907
  Receipt Date: 20110905
  Transmission Date: 20111222
  Serious: Yes (Hospitalization)
  Sender: FDA-Public Use
  Company Number: DE-SANOFI-AVENTIS-2011SA048116

PATIENT
  Age: 37 Year
  Sex: Female
  Weight: 50 kg

DRUGS (4)
  1. MINOCYCLINE HYDROCHLORIDE [Concomitant]
     Indication: ANTIBIOTIC THERAPY
     Dates: start: 20110701, end: 20110801
  2. HYDROXYCHLOROQUINE SULFATE [Suspect]
     Route: 048
     Dates: start: 20110724, end: 20110801
  3. COLESTYRAMIN [Concomitant]
     Indication: DRUG DETOXIFICATION
     Dates: start: 20110701, end: 20110801
  4. HYDROXYCHLOROQUINE SULFATE [Suspect]
     Indication: BORRELIA INFECTION
     Route: 048
     Dates: start: 20110701, end: 20110701

REACTIONS (2)
  - PALPITATIONS [None]
  - PANIC ATTACK [None]
